FAERS Safety Report 8871603 (Version 4)
Quarter: 2014Q2

REPORT INFORMATION
  Report Type: Spontaneous
  Country: US (occurrence: US)
  Receive Date: 20121030
  Receipt Date: 20130810
  Transmission Date: 20141212
  Serious: Yes (Hospitalization)
  Sender: FDA-Public Use
  Company Number: US-BAXTER-2012BAX020890

PATIENT
  Age: 65 Year
  Sex: Male

DRUGS (3)
  1. DIANEAL LOW CALCIUM [Suspect]
     Indication: PERITONEAL DIALYSIS
     Route: 033
  2. DIANEAL LOW CALCIUM [Suspect]
     Indication: PERITONEAL DIALYSIS
     Route: 033
  3. EXTRANEAL [Suspect]
     Indication: PERITONEAL DIALYSIS
     Route: 033

REACTIONS (7)
  - Chronic obstructive pulmonary disease [Recovered/Resolved]
  - Lung infection [Unknown]
  - Pleural effusion [Unknown]
  - Pneumonia [Unknown]
  - Fluid overload [Recovered/Resolved]
  - Wrong drug administered [Unknown]
  - Abdominal discomfort [Recovering/Resolving]
